APPROVED DRUG PRODUCT: ABLAVAR
Active Ingredient: GADOFOSVESET TRISODIUM
Strength: 2440MG/10ML (244MG/ML)
Dosage Form/Route: SOLUTION;INTRAVENOUS
Application: N021711 | Product #001
Applicant: LANTHEUS MEDICAL IMAGING INC
Approved: Dec 22, 2008 | RLD: No | RS: No | Type: DISCN